FAERS Safety Report 7358233-0 (Version None)
Quarter: 2011Q1

REPORT INFORMATION
  Report Type: 
  Country: None (occurrence: None)
  Receive Date: 20110317
  Receipt Date: 20110314
  Transmission Date: 20110831
  Serious: Yes (Other)
  Sender: FDA-Public Use
  Company Number: CA-ROCHE-762770

PATIENT
  Sex: Female
  Weight: 43.5 kg

DRUGS (4)
  1. LAMOTRIGINE [Concomitant]
  2. CLOBAZAM [Concomitant]
  3. KEPPRA [Concomitant]
  4. BEVACIZUMAB [Suspect]
     Indication: GLIOBLASTOMA
     Route: 042
     Dates: start: 20101007, end: 20101209

REACTIONS (1)
  - NEOPLASM MALIGNANT [None]
